FAERS Safety Report 26071920 (Version 1)
Quarter: 2025Q4

REPORT INFORMATION
  Report Type: Spontaneous
  Country: US (occurrence: US)
  Receive Date: 20251120
  Receipt Date: 20251120
  Transmission Date: 20260117
  Serious: No
  Sender: AMGEN
  Company Number: US-AMGEN-USASP2025227161

PATIENT
  Sex: Female

DRUGS (1)
  1. TEPEZZA [Suspect]
     Active Substance: TEPROTUMUMAB-TRBW
     Indication: Endocrine ophthalmopathy
     Dosage: 1 DOSAGE FORM, Q3WK (1 DOSE EVERY 3 WEEKS FOR A TOTAL 8 DOSAGES)
     Route: 042
     Dates: start: 202410, end: 202504

REACTIONS (6)
  - Muscle spasms [Recovered/Resolved]
  - Phlebitis superficial [Recovered/Resolved]
  - Limb discomfort [Recovered/Resolved]
  - Peripheral coldness [Recovered/Resolved]
  - Postprandial hypoglycaemia [Recovered/Resolved]
  - Abdominal rigidity [Not Recovered/Not Resolved]
